FAERS Safety Report 21349921 (Version 2)
Quarter: 2022Q4

REPORT INFORMATION
  Report Type: Spontaneous
  Country: US (occurrence: US)
  Receive Date: 20220919
  Receipt Date: 20221121
  Transmission Date: 20230112
  Serious: No
  Sender: FDA-Public Use
  Company Number: US-PFIZER INC-PV202200065049

PATIENT
  Age: 85 Year
  Sex: Female

DRUGS (1)
  1. XELJANZ XR [Suspect]
     Active Substance: TOFACITINIB CITRATE
     Dosage: 11 MG, DAILY

REACTIONS (6)
  - Nausea [Not Recovered/Not Resolved]
  - Abdominal pain upper [Unknown]
  - Blood pressure increased [Unknown]
  - Fatigue [Unknown]
  - Gastric disorder [Unknown]
  - Abdominal discomfort [Not Recovered/Not Resolved]
